FAERS Safety Report 9231583 (Version 1)
Quarter: 2013Q2

REPORT INFORMATION
  Report Type: Report from Study
  Country: US (occurrence: US)
  Receive Date: 20130415
  Receipt Date: 20130415
  Transmission Date: 20140414
  Serious: Yes (Other)
  Sender: FDA-Public Use
  Company Number: US-009507513-1304USA004944

PATIENT
  Age: 57 Year
  Sex: Female

DRUGS (1)
  1. FOSAMAX [Suspect]
     Indication: WRIST FRACTURE
     Dosage: UNK

REACTIONS (1)
  - Atypical femur fracture [Unknown]
